FAERS Safety Report 8437778-6 (Version None)
Quarter: 2012Q2

REPORT INFORMATION
  Report Type: 
  Country: None (occurrence: None)
  Receive Date: 20120614
  Receipt Date: 20120504
  Transmission Date: 20120825
  Serious: No
  Sender: FDA-Public Use
  Company Number: US-AMGEN-USASP2012028258

PATIENT
  Sex: Female

DRUGS (5)
  1. CARBOPLATIN [Concomitant]
     Dosage: UNK
  2. ALIMTA [Concomitant]
     Dosage: UNK
  3. AVASTIN [Concomitant]
     Dosage: UNK
  4. XGEVA [Suspect]
     Indication: METASTASES TO BONE
     Dosage: UNK
  5. PROCRIT [Concomitant]
     Dosage: UNK

REACTIONS (2)
  - FLUID RETENTION [None]
  - DYSPNOEA [None]
